FAERS Safety Report 8503559-8 (Version None)
Quarter: 2012Q3

REPORT INFORMATION
  Report Type: 
  Country: None (occurrence: None)
  Receive Date: 20120702
  Receipt Date: 20120621
  Transmission Date: 20120928
  Serious: Yes (Other)
  Sender: FDA-Public Use
  Company Number: ACO_30724_2012

PATIENT
  Age: 42 Year
  Sex: Female

DRUGS (5)
  1. ENABLEX /01760401/ (DARIFENACIN) [Concomitant]
  2. COPAXONE [Suspect]
     Indication: PRODUCT USED FOR UNKNOWN INDICATION
     Dates: start: 20120501
  3. BACLOFEN [Concomitant]
  4. TIZANIDINE HCL [Concomitant]
  5. AMPYRA [Suspect]
     Indication: SECONDARY PROGRESSIVE MULTIPLE SCLEROSIS
     Dosage: 10 MG, BID
     Dates: start: 20120501, end: 20120501

REACTIONS (9)
  - CONVULSION [None]
  - HEADACHE [None]
  - TONGUE HAEMORRHAGE [None]
  - FEELING ABNORMAL [None]
  - DIZZINESS [None]
  - FATIGUE [None]
  - TONGUE BITING [None]
  - DISTURBANCE IN ATTENTION [None]
  - INAPPROPRIATE SCHEDULE OF DRUG ADMINISTRATION [None]
